FAERS Safety Report 25376540 (Version 2)
Quarter: 2025Q2

REPORT INFORMATION
  Report Type: Report from Study
  Country: US (occurrence: US)
  Receive Date: 20250530
  Receipt Date: 20250611
  Transmission Date: 20250716
  Serious: Yes (Hospitalization)
  Sender: ROCHE
  Company Number: US-ROCHE-10000298315

PATIENT
  Age: 30 Year
  Sex: Female

DRUGS (1)
  1. XOLAIR [Suspect]
     Active Substance: OMALIZUMAB
     Indication: Asthma
     Dosage: INJECT 300MG SUBCUTANEOUSLY EVERY 4 WEEK(S)
     Route: 058

REACTIONS (1)
  - Illness [Unknown]
